FAERS Safety Report 17849410 (Version 3)
Quarter: 2020Q2

REPORT INFORMATION
  Report Type: Spontaneous
  Country: US (occurrence: US)
  Receive Date: 20200602
  Receipt Date: 20200624
  Transmission Date: 20200714
  Serious: Yes (Other)
  Sender: FDA-Public Use
  Company Number: US-TEVA-2020-US-1241945

PATIENT
  Sex: Male

DRUGS (6)
  1. FENTANYL. [Suspect]
     Active Substance: FENTANYL
     Indication: PAIN
     Dosage: USED FENTANYL PATCHES FOR ALMOST 5 TO 6 WEEKS; USED TO USE IT EVERY OTHER DAY
     Route: 062
     Dates: end: 2008
  2. OXYCODONE [Suspect]
     Active Substance: OXYCODONE
     Route: 065
  3. OXYCONTIN [Suspect]
     Active Substance: OXYCODONE HYDROCHLORIDE
     Route: 065
  4. IBUPROFEN. [Concomitant]
     Active Substance: IBUPROFEN
     Route: 065
  5. TYLENOL [Concomitant]
     Active Substance: ACETAMINOPHEN
     Route: 065
  6. METHADONE [Suspect]
     Active Substance: METHADONE HYDROCHLORIDE
     Indication: PAIN
     Route: 065

REACTIONS (9)
  - Drug dependence [Unknown]
  - Drug ineffective [Unknown]
  - Dyspnoea [Unknown]
  - Heart rate increased [Unknown]
  - Abnormal behaviour [Unknown]
  - Ill-defined disorder [Unknown]
  - Chest pain [Unknown]
  - Palpitations [Unknown]
  - Delusion [Unknown]
